FAERS Safety Report 4668476-2 (Version None)
Quarter: 2005Q2

REPORT INFORMATION
  Report Type: 
  Country: None (occurrence: None)
  Receive Date: 20050519
  Receipt Date: 20050512
  Transmission Date: 20051028
  Serious: Yes (Congenital Anomaly, Other)
  Sender: FDA-Public Use
  Company Number: 2005-05-0858

PATIENT
  Age: 3 Year
  Sex: Female

DRUGS (2)
  1. RIBAVIRIN [Suspect]
     Dates: start: 19970101, end: 20010130
  2. INTERFERON INJECTABLE [Suspect]
     Dosage: TIW
     Dates: start: 19970101, end: 20010130

REACTIONS (8)
  - CONGENITAL BOWING OF LONG BONES [None]
  - DEVELOPMENTAL DELAY [None]
  - DRUG EXPOSURE DURING PREGNANCY [None]
  - ELBOW DEFORMITY [None]
  - LIMB MALFORMATION [None]
  - LOWER LIMB DEFORMITY [None]
  - SKELETON DYSPLASIA [None]
  - TRANSMISSION OF DRUG VIA SEMEN [None]
